FAERS Safety Report 14617518 (Version 2)
Quarter: 2018Q1

REPORT INFORMATION
  Report Type: Spontaneous
  Country: DE (occurrence: DE)
  Receive Date: 20180309
  Receipt Date: 20180313
  Transmission Date: 20180509
  Serious: No
  Sender: FDA-Public Use
  Company Number: PHHY2018DE037622

PATIENT
  Sex: Female

DRUGS (1)
  1. TEGRETAL [Suspect]
     Active Substance: CARBAMAZEPINE
     Indication: EPILEPSY
     Dosage: 0.5 DF, (400 MG, HALF A TABLET IN MORNING AND IN EVENING) BID
     Route: 065

REACTIONS (1)
  - Parkinsonism [Unknown]
